FAERS Safety Report 26006129 (Version 2)
Quarter: 2025Q4

REPORT INFORMATION
  Report Type: Report from Study
  Country: EU (occurrence: EU)
  Receive Date: 20251106
  Receipt Date: 20251112
  Transmission Date: 20260117
  Serious: Yes (Hospitalization)
  Sender: ROCHE
  Company Number: None

PATIENT
  Age: 77 Year
  Sex: Female
  Weight: 70.0 kg

DRUGS (26)
  1. XELODA [Suspect]
     Active Substance: CAPECITABINE
     Indication: HER2 positive breast cancer
     Dosage: FROM DAY 1 TO DAY 14
     Route: 048
     Dates: start: 20200702, end: 20200723
  2. XELODA [Suspect]
     Active Substance: CAPECITABINE
     Dosage: FROM DAY 1 TO DAY 14
     Route: 048
     Dates: start: 20200723, end: 20200810
  3. XELODA [Suspect]
     Active Substance: CAPECITABINE
     Dosage: FROM DAY 1 TO DAY 14
     Route: 048
     Dates: start: 20200911, end: 20210301
  4. XELODA [Suspect]
     Active Substance: CAPECITABINE
     Dosage: FROM DAY 1 TO DAY 14
     Route: 048
     Dates: start: 20210301, end: 20210729
  5. HERCEPTIN [Suspect]
     Active Substance: TRASTUZUMAB
     Indication: HER2 positive breast cancer
     Route: 042
     Dates: start: 20190530, end: 20200214
  6. HERCEPTIN [Suspect]
     Active Substance: TRASTUZUMAB
     Route: 042
     Dates: start: 20200702
  7. PERJETA [Suspect]
     Active Substance: PERTUZUMAB
     Indication: HER2 positive breast cancer
     Route: 042
     Dates: start: 20190530, end: 20200214
  8. KADCYLA [Suspect]
     Active Substance: ADO-TRASTUZUMAB EMTANSINE
     Indication: HER2 positive breast cancer
     Route: 042
     Dates: start: 20200310, end: 20200331
  9. AROMASIN [Suspect]
     Active Substance: EXEMESTANE
     Indication: HER2 positive breast cancer
     Route: 048
     Dates: start: 20200512, end: 20200702
  10. TAXOL [Suspect]
     Active Substance: PACLITAXEL
     Indication: HER2 positive breast cancer
     Route: 042
     Dates: start: 20190509, end: 20190906
  11. FEMARA [Suspect]
     Active Substance: LETROZOLE
     Indication: HER2 positive breast cancer
     Route: 048
     Dates: start: 20191030, end: 20200302
  12. CITALOPRAM [Concomitant]
     Active Substance: CITALOPRAM
     Dates: start: 20200715
  13. DIETARY SUPPLEMENT\HERBALS\MILK THISTLE [Concomitant]
     Active Substance: MILK THISTLE
  14. TAZAROTENE [Concomitant]
     Active Substance: TAZAROTENE
     Dates: start: 20191205, end: 20200420
  15. CARVEDILOL [Concomitant]
     Active Substance: CARVEDILOL
     Dates: start: 20200603
  16. PREGABALIN [Concomitant]
     Active Substance: PREGABALIN
  17. MEDROL [Concomitant]
     Active Substance: METHYLPREDNISOLONE
  18. ACETAMINOPHEN\OXYCODONE HYDROCHLORIDE [Concomitant]
     Active Substance: ACETAMINOPHEN\OXYCODONE HYDROCHLORIDE
  19. LEVOTHYROXINE SODIUM [Concomitant]
     Active Substance: LEVOTHYROXINE SODIUM
  20. NEURONTIN [Concomitant]
     Active Substance: GABAPENTIN
     Dates: start: 20190725, end: 20200420
  21. LACTULOSE [Concomitant]
     Active Substance: LACTULOSE
  22. NORMAST [Concomitant]
  23. LEVOPRAID [Concomitant]
  24. LEVACECARNINE HYDROCHLORIDE [Concomitant]
     Active Substance: LEVACECARNINE HYDROCHLORIDE
  25. GABAPENTIN [Concomitant]
     Active Substance: GABAPENTIN
  26. LOPERAMIDE HYDROCHLORIDE [Concomitant]
     Active Substance: LOPERAMIDE HYDROCHLORIDE

REACTIONS (2)
  - Hypertransaminasaemia [Recovered/Resolved]
  - Diarrhoea [Recovered/Resolved]
